FAERS Safety Report 4706756-2 (Version None)
Quarter: 2005Q2

REPORT INFORMATION
  Report Type: 
  Country: None (occurrence: None)
  Receive Date: 20050629
  Receipt Date: 20050303
  Transmission Date: 20051028
  Serious: No
  Sender: FDA-Public Use
  Company Number: 05P-163-0290432-00

PATIENT
  Age: 85 Year
  Sex: Female
  Weight: 58.9676 kg

DRUGS (8)
  1. HUMIRA [Suspect]
     Indication: RHEUMATOID ARTHRITIS
     Dosage: 40 MG, 1 IN 2 WK, SUBCUTANEOUS
     Route: 058
     Dates: start: 20041201, end: 20050101
  2. PREDNISONE TAB [Concomitant]
  3. ALENDRONATE SODIUM [Concomitant]
  4. THYROID TAB [Concomitant]
  5. FUROSEMIDE [Concomitant]
  6. MULTI-VITAMINS [Concomitant]
  7. CALCIUM GLUCONATE [Concomitant]
  8. ERGOCALCIFEROL [Concomitant]

REACTIONS (4)
  - ASTHENIA [None]
  - NASOPHARYNGITIS [None]
  - PAIN IN EXTREMITY [None]
  - PARAESTHESIA [None]
